FAERS Safety Report 6248224-5 (Version None)
Quarter: 2009Q2

REPORT INFORMATION
  Report Type: 
  Country: None (occurrence: None)
  Receive Date: 20090629
  Receipt Date: 20070710
  Transmission Date: 20091009
  Serious: Yes (Other)
  Sender: FDA-Public Use
  Company Number: US-ASTRAZENECA-2006UW27668

PATIENT
  Age: 15814 Day
  Sex: Male
  Weight: 90.7 kg

DRUGS (30)
  1. SEROQUEL [Suspect]
     Indication: MAJOR DEPRESSION
     Dosage: 25 MG ONE TO TWO TABLETS, TWICE IN A DAY
     Route: 048
     Dates: start: 20050310
  2. SEROQUEL [Suspect]
     Indication: PANIC DISORDER
     Dosage: 25 MG ONE TO TWO TABLETS, TWICE IN A DAY
     Route: 048
     Dates: start: 20050310
  3. SEROQUEL [Suspect]
     Indication: ANXIETY
     Dosage: 25 MG ONE TO TWO TABLETS, TWICE IN A DAY
     Route: 048
     Dates: start: 20050310
  4. SEROQUEL [Suspect]
     Indication: SLEEP DISORDER
     Dosage: 25 MG ONE TO TWO TABLETS, TWICE IN A DAY
     Route: 048
     Dates: start: 20050310
  5. SEROQUEL [Suspect]
     Dosage: 25 MG IN THE MORNING AND IN THE AFTERNOON
     Route: 048
     Dates: start: 20050324
  6. SEROQUEL [Suspect]
     Dosage: 25 MG IN THE MORNING AND IN THE AFTERNOON
     Route: 048
     Dates: start: 20050324
  7. SEROQUEL [Suspect]
     Dosage: 25 MG IN THE MORNING AND IN THE AFTERNOON
     Route: 048
     Dates: start: 20050324
  8. SEROQUEL [Suspect]
     Dosage: 25 MG IN THE MORNING AND IN THE AFTERNOON
     Route: 048
     Dates: start: 20050324
  9. SEROQUEL [Suspect]
     Route: 048
     Dates: start: 20050421
  10. SEROQUEL [Suspect]
     Route: 048
     Dates: start: 20050421
  11. SEROQUEL [Suspect]
     Route: 048
     Dates: start: 20050421
  12. SEROQUEL [Suspect]
     Route: 048
     Dates: start: 20050421
  13. SEROQUEL [Suspect]
     Route: 048
     Dates: start: 20051205
  14. SEROQUEL [Suspect]
     Route: 048
     Dates: start: 20051205
  15. SEROQUEL [Suspect]
     Route: 048
     Dates: start: 20051205
  16. SEROQUEL [Suspect]
     Route: 048
     Dates: start: 20051205
  17. SEROQUEL [Suspect]
     Route: 048
     Dates: start: 20071207
  18. SEROQUEL [Suspect]
     Route: 048
     Dates: start: 20071207
  19. SEROQUEL [Suspect]
     Route: 048
     Dates: start: 20071207
  20. SEROQUEL [Suspect]
     Route: 048
     Dates: start: 20071207
  21. MARIJUANA [Concomitant]
  22. CLONAZEPAM [Concomitant]
     Indication: ANXIETY
     Dates: start: 20060517
  23. TRAMADOL HCL [Concomitant]
     Dosage: 50 TO 100 MG
     Dates: start: 20050413
  24. LISINOPRIL [Concomitant]
     Dosage: 2.5 MG TO 5 MG
     Dates: start: 20060323
  25. METFORMIN HCL [Concomitant]
     Dosage: 500 MG TO 1000 MG
     Dates: start: 20060323
  26. ZETIA [Concomitant]
     Dates: start: 20060327
  27. ATENOLOL [Concomitant]
     Dosage: 100 TO 200 MG
     Dates: start: 20041119
  28. PAXIL CR [Concomitant]
     Dosage: 20 TO 60 MG
     Dates: start: 20041010
  29. ALPRAZOLAM [Concomitant]
     Dates: start: 20041111
  30. TRAZODONE HCL [Concomitant]
     Indication: SLEEP DISORDER
     Dates: start: 20060703

REACTIONS (3)
  - DIABETES MELLITUS [None]
  - NEUROPATHY PERIPHERAL [None]
  - PANCREATITIS [None]
